FAERS Safety Report 10143996 (Version 1)
Quarter: 2014Q2

REPORT INFORMATION
  Report Type: Report from Study
  Country: AR (occurrence: AR)
  Receive Date: 20140430
  Receipt Date: 20140430
  Transmission Date: 20141212
  Serious: Yes (Death)
  Sender: FDA-Public Use
  Company Number: AR-BRISTOL-MYERS SQUIBB COMPANY-20668448

PATIENT
  Age: 68 Year
  Sex: Male

DRUGS (1)
  1. YERVOY [Suspect]
     Dosage: STRENGTH:50MG/10ML.DRUG INTERRUPTED ON 17-APR-2014.
     Dates: start: 20131216

REACTIONS (1)
  - Death [Fatal]
